FAERS Safety Report 7389370-2 (Version None)
Quarter: 2011Q2

REPORT INFORMATION
  Report Type: 
  Country: None (occurrence: None)
  Receive Date: 20110401
  Receipt Date: 20110324
  Transmission Date: 20111010
  Serious: Yes (Other)
  Sender: FDA-Public Use
  Company Number: B0708176A

PATIENT
  Age: 54 Year
  Sex: Female
  Weight: 76 kg

DRUGS (12)
  1. LEVOTHYROXINE SODIUM [Suspect]
     Indication: PRODUCT USED FOR UNKNOWN INDICATION
     Route: 048
  2. SINGULAIR [Suspect]
     Indication: PRODUCT USED FOR UNKNOWN INDICATION
     Route: 048
  3. NEXIUM [Concomitant]
     Dates: start: 20060101
  4. ATACAND [Concomitant]
     Dates: start: 20060101
  5. MEDIATOR [Suspect]
     Indication: TYPE 2 DIABETES MELLITUS
     Dosage: 300MG PER DAY
     Route: 048
     Dates: start: 20040301, end: 20060901
  6. PRAVASTATIN SODIUM [Suspect]
     Indication: PRODUCT USED FOR UNKNOWN INDICATION
     Route: 048
  7. LANSOPRAZOLE [Suspect]
     Indication: PRODUCT USED FOR UNKNOWN INDICATION
     Route: 048
     Dates: end: 20060101
  8. ALDACTAZINE [Concomitant]
     Route: 048
     Dates: end: 20060101
  9. FLUTICASONE PROPIONATE/SALMETEROL [Suspect]
     Indication: PRODUCT USED FOR UNKNOWN INDICATION
     Route: 055
  10. LASIX [Concomitant]
     Dates: start: 20060101
  11. DIFFU-K [Concomitant]
     Dates: start: 20060101
  12. KREDEX [Concomitant]
     Route: 048

REACTIONS (2)
  - MITRAL VALVE INCOMPETENCE [None]
  - AORTIC VALVE INCOMPETENCE [None]
